FAERS Safety Report 4301350-X (Version None)
Quarter: 2004Q1

REPORT INFORMATION
  Report Type: 
  Country: None (occurrence: None)
  Receive Date: 20040223
  Receipt Date: 20030422
  Transmission Date: 20041129
  Serious: Yes (Disabling, Other)
  Sender: FDA-Public Use
  Company Number: US-GLAXOSMITHKLINE-A0405922A

PATIENT
  Age: 52 Year
  Sex: Female
  Weight: 55.9 kg

DRUGS (3)
  1. NAVELBINE [Suspect]
     Indication: BREAST CANCER
     Dosage: 30MGM2 PER DAY
     Route: 042
     Dates: start: 20020614, end: 20030213
  2. B12 [Concomitant]
     Dosage: 2000MCG WEEKLY
     Route: 030
     Dates: start: 20021114
  3. NEXIUM [Concomitant]

REACTIONS (2)
  - DEAFNESS NEUROSENSORY [None]
  - TINNITUS [None]
